FAERS Safety Report 8159687-2 (Version None)
Quarter: 2012Q1

REPORT INFORMATION
  Report Type: 
  Country: None (occurrence: None)
  Receive Date: 20120223
  Receipt Date: 20111213
  Transmission Date: 20120608
  Serious: Yes (Death, Hospitalization)
  Sender: FDA-Public Use
  Company Number: FR-CELGENEUS-056-21880-11112204

PATIENT
  Sex: Female
  Weight: 79 kg

DRUGS (3)
  1. DEXAMETHASONE (NEODEX) [Suspect]
     Indication: MYELOMA RECURRENCE
     Route: 048
     Dates: start: 20110214, end: 20110801
  2. REVLIMID [Suspect]
     Indication: MYELOMA RECURRENCE
     Route: 048
     Dates: start: 20110614, end: 20110815
  3. VELCADE [Suspect]
     Indication: MYELOMA RECURRENCE
     Route: 041
     Dates: start: 20110214, end: 20110812

REACTIONS (2)
  - STATUS EPILEPTICUS [None]
  - KLEBSIELLA SEPSIS [None]
